FAERS Safety Report 5020959-1 (Version None)
Quarter: 2006Q2

REPORT INFORMATION
  Report Type: 
  Country: None (occurrence: None)
  Receive Date: 20060608
  Receipt Date: 20060419
  Transmission Date: 20061013
  Serious: Yes (Disabling)
  Sender: FDA-Public Use
  Company Number: DE-AVENTIS-200611127DE

PATIENT
  Age: 45 Year
  Sex: Female
  Weight: 80 kg

DRUGS (4)
  1. KETEK [Suspect]
     Indication: ANGINA PECTORIS
     Route: 048
     Dates: start: 20060104, end: 20060111
  2. KETEK [Suspect]
     Indication: OTITIS MEDIA
     Route: 048
     Dates: start: 20060104, end: 20060111
  3. THYRONAJOD [Concomitant]
     Indication: THYROIDECTOMY
     Route: 048
     Dates: start: 20020101
  4. PROTHYRID [Concomitant]
     Indication: THYROIDECTOMY
     Dates: start: 20020101

REACTIONS (2)
  - AGEUSIA [None]
  - ANOSMIA [None]
